FAERS Safety Report 4844184-X (Version None)
Quarter: 2005Q4

REPORT INFORMATION
  Report Type: 
  Country: None (occurrence: None)
  Receive Date: 20051202
  Receipt Date: 20051109
  Transmission Date: 20060501
  Serious: Yes (Other)
  Sender: FDA-Public Use
  Company Number: US-ABBOTT-05P-163-0317147-00

PATIENT
  Age: 16 Year
  Sex: Male

DRUGS (3)
  1. ERYTHROMYCIN [Suspect]
     Indication: ACNE
  2. BUPROPION HCL [Interacting]
     Indication: DEPRESSION
  3. METHYLPHENIDATE HCL [Interacting]
     Indication: ATTENTION DEFICIT/HYPERACTIVITY DISORDER

REACTIONS (2)
  - ACUTE MYOCARDIAL INFARCTION [None]
  - DRUG INTERACTION [None]
